FAERS Safety Report 23956812 (Version 1)
Quarter: 2024Q2

REPORT INFORMATION
  Report Type: Other
  Country: DE (occurrence: None)
  Receive Date: 20240610
  Receipt Date: 20240610
  Transmission Date: 20240716
  Serious: Yes (Death, Other)
  Sender: FDA-Public Use
  Company Number: DE-ROCHE-3575375

PATIENT

DRUGS (18)
  1. RITUXIMAB [Suspect]
     Active Substance: RITUXIMAB
     Indication: Mantle cell lymphoma
     Dosage: ON DAY 0 OR 1
     Route: 042
  2. CYCLOPHOSPHAMIDE [Suspect]
     Active Substance: CYCLOPHOSPHAMIDE
     Indication: Mantle cell lymphoma
     Dosage: ON DAY 1
     Route: 042
  3. DOXORUBICIN [Suspect]
     Active Substance: DOXORUBICIN
     Indication: Mantle cell lymphoma
     Dosage: ON DAY 1
     Route: 042
  4. VINCRISTINE [Suspect]
     Active Substance: VINCRISTINE
     Indication: Mantle cell lymphoma
     Dosage: ON DAY 1
     Route: 042
  5. PREDNISOLONE [Suspect]
     Active Substance: PREDNISOLONE
     Indication: Mantle cell lymphoma
     Dosage: ON DAY 1-5
     Route: 048
  6. DEXAMETHASONE [Suspect]
     Active Substance: DEXAMETHASONE
     Indication: Mantle cell lymphoma
     Dosage: ON DAY 1-4
     Route: 048
  7. DEXAMETHASONE [Suspect]
     Active Substance: DEXAMETHASONE
     Dosage: ON DAY 1-4
     Route: 042
  8. CYTARABINE [Suspect]
     Active Substance: CYTARABINE
     Indication: Mantle cell lymphoma
     Dosage: ON DAY 2 FOR 3 HOURS?2X 2 G/M2?R-DHAP (CYCLE 2,4,6)
     Route: 042
  9. CYTARABINE [Suspect]
     Active Substance: CYTARABINE
     Dosage: ON DAY 3 AND 4  FOR 30 MINUTES?2X 1.5 G/M2?THAM
     Route: 042
  10. CISPLATIN [Suspect]
     Active Substance: CISPLATIN
     Indication: Mantle cell lymphoma
     Dosage: ON DAY 1?FOR 24 HOURS
     Route: 042
  11. OXALIPLATIN [Suspect]
     Active Substance: OXALIPLATIN
     Indication: Mantle cell lymphoma
     Dosage: ON DAY 1
     Route: 042
  12. GRANULOCYTE COLONY-STIMULATING FACTOR NOS [Suspect]
     Active Substance: GRANULOCYTE COLONY-STIMULATING FACTOR NOS
     Indication: Mantle cell lymphoma
     Dosage: ON DAY 6
     Route: 058
  13. MELPHALAN [Suspect]
     Active Substance: MELPHALAN
     Indication: Mantle cell lymphoma
     Dosage: ON DAY 2 FOR 1 HOUR
     Route: 042
  14. CARMUSTINE [Suspect]
     Active Substance: CARMUSTINE
     Indication: Mantle cell lymphoma
     Dosage: ON DAY 7 FOR 1 HOUR
     Route: 042
  15. ETOPOSIDE [Suspect]
     Active Substance: ETOPOSIDE
     Indication: Mantle cell lymphoma
     Dosage: ON DAY 3 AND 6 FOR 1 HOUR
     Route: 042
  16. CYTARABINE [Suspect]
     Active Substance: CYTARABINE
     Indication: Mantle cell lymphoma
     Dosage: ON DAY 3 AND 6 FOR 30 MINS
     Route: 042
  17. IBRUTINIB [Suspect]
     Active Substance: IBRUTINIB
     Indication: Mantle cell lymphoma
     Dosage: ON DAY 1 -19
     Route: 048
  18. THIOTEPA [Suspect]
     Active Substance: THIOTEPA
     Indication: Mantle cell lymphoma
     Dosage: ON DAY 7
     Route: 042

REACTIONS (38)
  - Diarrhoea [Fatal]
  - Melaena [Fatal]
  - Pneumonia [Fatal]
  - Completed suicide [Fatal]
  - Sepsis [Fatal]
  - Upper respiratory tract infection [Fatal]
  - Coronavirus infection [Fatal]
  - Gastric haemorrhage [Fatal]
  - Anal fistula [Fatal]
  - Pneumonitis [Fatal]
  - Acute respiratory distress syndrome [Fatal]
  - Platelet count decreased [Fatal]
  - Bone marrow failure [Fatal]
  - Sudden death [Fatal]
  - Hemiparesis [Fatal]
  - Respiratory disorder [Fatal]
  - Infection [Fatal]
  - Malignant melanoma [Fatal]
  - Myocardial infarction [Fatal]
  - Tracheal inflammation [Fatal]
  - Venoocclusive disease [Fatal]
  - Neutrophil count decreased [Unknown]
  - Anaemia [Unknown]
  - White blood cell count decreased [Unknown]
  - Febrile neutropenia [Unknown]
  - Lymphocyte count decreased [Unknown]
  - Nausea [Unknown]
  - Hypokalaemia [Unknown]
  - Acute kidney injury [Unknown]
  - Mucosal inflammation [Unknown]
  - Pyrexia [Unknown]
  - Stomatitis [Unknown]
  - Decreased appetite [Unknown]
  - Gamma-glutamyltransferase increased [Unknown]
  - Vomiting [Unknown]
  - Fatigue [Unknown]
  - Hypertension [Unknown]
  - Herpes zoster [Unknown]
